FAERS Safety Report 15669181 (Version 1)
Quarter: 2018Q4

REPORT INFORMATION
  Report Type: Spontaneous
  Country: US (occurrence: US)
  Receive Date: 20181129
  Receipt Date: 20181129
  Transmission Date: 20190205
  Serious: Yes (Hospitalization)
  Sender: FDA-Public Use
  Company Number: US-TEVA-2018-US-978998

PATIENT
  Age: 21 Year
  Sex: Male
  Weight: 176 kg

DRUGS (2)
  1. CLOZAPINE. [Suspect]
     Active Substance: CLOZAPINE
     Indication: SCHIZOAFFECTIVE DISORDER
     Dosage: 300 MILLIGRAM DAILY; 100MG IN THE MORNING AND 200MG IN THE EVENING
     Route: 065
     Dates: start: 20150427
  2. AMLODIPINE [Concomitant]
     Active Substance: AMLODIPINE BESYLATE
     Indication: HYPERTENSION

REACTIONS (7)
  - Unresponsive to stimuli [Unknown]
  - Apparent death [Unknown]
  - Dyspnoea [Unknown]
  - Arthropathy [Unknown]
  - Eye movement disorder [Unknown]
  - Resuscitation [Unknown]
  - Respiratory arrest [Unknown]

NARRATIVE: CASE EVENT DATE: 20180923
